FAERS Safety Report 12925695 (Version 1)
Quarter: 2016Q4

REPORT INFORMATION
  Report Type: Spontaneous
  Country: US (occurrence: US)
  Receive Date: 20161108
  Receipt Date: 20161108
  Transmission Date: 20170207
  Serious: No
  Sender: FDA-Public Use
  Company Number: US-SA-2016SA195011

PATIENT
  Age: 68 Year
  Sex: Male

DRUGS (11)
  1. BENICAR HCT [Concomitant]
     Active Substance: HYDROCHLOROTHIAZIDE\OLMESARTAN MEDOXOMIL
  2. AZELASTINE [Concomitant]
     Active Substance: AZELASTINE
  3. CEFDINIR. [Concomitant]
     Active Substance: CEFDINIR
  4. PRALUENT [Suspect]
     Active Substance: ALIROCUMAB
     Route: 065
  5. HUMULIN R [Concomitant]
     Active Substance: INSULIN HUMAN
  6. VIAGRA [Concomitant]
     Active Substance: SILDENAFIL CITRATE
  7. ALIROCUMAB PREFILLED PEN [Concomitant]
     Active Substance: ALIROCUMAB
  8. NITROSTAT [Concomitant]
     Active Substance: NITROGLYCERIN
  9. CLINDAMYCIN. [Concomitant]
     Active Substance: CLINDAMYCIN
  10. FLUTICASONE [Concomitant]
     Active Substance: FLUTICASONE\FLUTICASONE PROPIONATE
  11. VENTOLIN [Concomitant]
     Active Substance: ALBUTEROL SULFATE

REACTIONS (4)
  - Confusional state [Unknown]
  - Gastrointestinal disorder [Unknown]
  - Muscular weakness [Unknown]
  - Fatigue [Unknown]
